FAERS Safety Report 7209417-3 (Version None)
Quarter: 2010Q4

REPORT INFORMATION
  Report Type: 
  Country: None (occurrence: None)
  Receive Date: 20101222
  Receipt Date: 20101209
  Transmission Date: 20110411
  Serious: Yes (Death, Other)
  Sender: FDA-Public Use
  Company Number: 012312

PATIENT
  Age: 19 Year
  Sex: Male

DRUGS (2)
  1. BUSULFEX [Suspect]
     Indication: STEM CELL TRANSPLANT
     Dosage: INTRAVENOUS
     Route: 042
  2. CYCLOPHOSPHAMIDE [Concomitant]

REACTIONS (19)
  - ABDOMINAL DISCOMFORT [None]
  - ACUTE GRAFT VERSUS HOST DISEASE [None]
  - ALANINE AMINOTRANSFERASE INCREASED [None]
  - ASPARTATE AMINOTRANSFERASE INCREASED [None]
  - CONVULSION [None]
  - FLUSHING [None]
  - INAPPROPRIATE ANTIDIURETIC HORMONE SECRETION [None]
  - IRRITABILITY [None]
  - LOSS OF CONSCIOUSNESS [None]
  - MULTI-ORGAN FAILURE [None]
  - MUSCLE SPASMS [None]
  - NAUSEA [None]
  - NEUTROPENIA [None]
  - NO THERAPEUTIC RESPONSE [None]
  - OEDEMA [None]
  - PYREXIA [None]
  - RASH PAPULAR [None]
  - TOXIC ENCEPHALOPATHY [None]
  - VOMITING [None]
